FAERS Safety Report 17958344 (Version 1)
Quarter: 2020Q2

REPORT INFORMATION
  Report Type: Spontaneous
  Country: US (occurrence: US)
  Receive Date: 20200629
  Receipt Date: 20200629
  Transmission Date: 20200714
  Serious: No
  Sender: FDA-Public Use
  Company Number: US-AMNEAL PHARMACEUTICALS-2020-AMRX-00897

PATIENT
  Sex: Female

DRUGS (1)
  1. SUCRALFATE. [Suspect]
     Active Substance: SUCRALFATE
     Indication: PRODUCT USED FOR UNKNOWN INDICATION
     Dosage: 2 TSP, 3 /DAY
     Route: 065

REACTIONS (1)
  - Faeces discoloured [Unknown]

NARRATIVE: CASE EVENT DATE: 20200318
